FAERS Safety Report 25701727 (Version 1)
Quarter: 2025Q3

REPORT INFORMATION
  Report Type: Spontaneous
  Country: US (occurrence: US)
  Receive Date: 20250819
  Receipt Date: 20250819
  Transmission Date: 20251021
  Serious: Yes (Other)
  Sender: ELI LILLY AND COMPANY
  Company Number: US-ELI_LILLY_AND_COMPANY-US202508012763

PATIENT
  Age: 52 Year
  Sex: Female

DRUGS (1)
  1. OLUMIANT [Suspect]
     Active Substance: BARICITINIB
     Indication: Non-scarring alopecia
     Dosage: 2 MG, DAILY
     Route: 048
     Dates: end: 20250720

REACTIONS (3)
  - Hepatitis [Unknown]
  - Headache [Unknown]
  - Abdominal pain [Unknown]
